FAERS Safety Report 5664531-9 (Version None)
Quarter: 2008Q1

REPORT INFORMATION
  Report Type: 
  Country: None (occurrence: None)
  Receive Date: 20080311
  Receipt Date: 20080311
  Transmission Date: 20080703
  Serious: Yes (Other)
  Sender: FDA-Public Use
  Company Number: None

PATIENT
  Age: 48 Year
  Sex: Female
  Weight: 66.6788 kg

DRUGS (9)
  1. REBIF [Suspect]
     Indication: MULTIPLE SCLEROSIS
     Dosage: 44 MCG 3 TIMES WEEKLY SQ
     Route: 058
  2. ORTHO TRI-CYCLEN [Concomitant]
  3. DILANTIN [Concomitant]
  4. DEPAKOTE [Concomitant]
  5. LEVOTHYROXINE SODIUM [Concomitant]
  6. TRAZODONE HCL [Concomitant]
  7. PROTONIX [Concomitant]
  8. ZOLOFT [Concomitant]
  9. FIORINAL [Concomitant]

REACTIONS (1)
  - SKIN NECROSIS [None]
